FAERS Safety Report 4641743-4 (Version None)
Quarter: 2005Q2

REPORT INFORMATION
  Report Type: 
  Country: None (occurrence: None)
  Receive Date: 20050420
  Receipt Date: 20050414
  Transmission Date: 20051028
  Serious: Yes (Death)
  Sender: FDA-Public Use
  Company Number: Q05-013

PATIENT
  Age: 86 Year
  Sex: Male
  Weight: 75.2971 kg

DRUGS (1)
  1. SAMARIUM SM-153 LEXIDRONAM [Suspect]
     Indication: PROSTATE CANCER METASTATIC
     Dosage: 73 MILLIGRAM IV
     Route: 042
     Dates: start: 20050210

REACTIONS (1)
  - PROSTATE CANCER METASTATIC [None]
